FAERS Safety Report 14133206 (Version 2)
Quarter: 2018Q1

REPORT INFORMATION
  Report Type: Spontaneous
  Country: IT (occurrence: IT)
  Receive Date: 20171027
  Receipt Date: 20180305
  Transmission Date: 20180508
  Serious: Yes (Hospitalization)
  Sender: FDA-Public Use
  Company Number: IT-ACCORD-060252

PATIENT
  Age: 47 Year
  Sex: Female
  Weight: 90 kg

DRUGS (3)
  1. HERCEPTIN [Concomitant]
     Active Substance: TRASTUZUMAB
     Indication: BREAST CANCER
     Dosage: STRENGTH: 150 MG
     Route: 042
     Dates: start: 20171009, end: 20171009
  2. PERJETA [Concomitant]
     Active Substance: PERTUZUMAB
     Indication: BREAST CANCER
     Dosage: STRENGTH: 420 MG
     Route: 042
     Dates: start: 20171009, end: 20171009
  3. DOCETAXEL ACCORD [Suspect]
     Active Substance: DOCETAXEL
     Indication: BREAST CANCER
     Dosage: 120 MG TOTAL, STRENGTH: 80 MG/4 ML
     Route: 042
     Dates: start: 20171009, end: 20171009

REACTIONS (3)
  - Dyspnoea [Recovered/Resolved]
  - Erythema [Recovered/Resolved]
  - Band sensation [Recovered/Resolved]

NARRATIVE: CASE EVENT DATE: 20171009
